FAERS Safety Report 6716636-9 (Version None)
Quarter: 2010Q2

REPORT INFORMATION
  Report Type: 
  Country: None (occurrence: None)
  Receive Date: 20100507
  Receipt Date: 20100503
  Transmission Date: 20101027
  Serious: Yes (Hospitalization)
  Sender: FDA-Public Use
  Company Number: US-AMGEN-KDC410032

PATIENT
  Age: 66 Year
  Sex: Female
  Weight: 117.7 kg

DRUGS (4)
  1. PANITUMUMAB [Suspect]
     Indication: PANCREATIC CARCINOMA
     Route: 042
     Dates: start: 20100215
  2. ERLOTINIB HYDROCHLORIDE [Suspect]
     Route: 048
     Dates: start: 20100215
  3. GEMCITABINE HCL [Suspect]
     Route: 042
     Dates: start: 20100215
  4. LOMOTIL [Concomitant]

REACTIONS (4)
  - DEHYDRATION [None]
  - DIARRHOEA [None]
  - HAEMOGLOBIN DECREASED [None]
  - WHITE BLOOD CELL COUNT DECREASED [None]
